FAERS Safety Report 8549373-9 (Version None)
Quarter: 2012Q3

REPORT INFORMATION
  Report Type: 
  Country: None (occurrence: None)
  Receive Date: 20120720
  Receipt Date: 20120720
  Transmission Date: 20120928
  Serious: Yes (Hospitalization)
  Sender: FDA-Public Use
  Company Number: None

PATIENT
  Sex: Female
  Weight: 107.7 kg

DRUGS (2)
  1. PRALATREXATE [Suspect]
     Indication: COLON CANCER METASTATIC
     Dosage: 60MG/M2  Q2 WEEKS IV
     Route: 042
     Dates: start: 20111101, end: 20120416
  2. FLUOROURACIL [Suspect]
     Dosage: 3000MG/M2 Q2 WEEKS IV
     Route: 042
     Dates: start: 20111102, end: 20120417

REACTIONS (4)
  - STAPHYLOCOCCUS TEST POSITIVE [None]
  - SEPSIS [None]
  - JOINT SWELLING [None]
  - ARTHRALGIA [None]
